FAERS Safety Report 8575363-6 (Version None)
Quarter: 2012Q3

REPORT INFORMATION
  Report Type: 
  Country: None (occurrence: None)
  Receive Date: 20120807
  Receipt Date: 20120807
  Transmission Date: 20120928
  Serious: No
  Sender: FDA-Public Use
  Company Number: US-PFIZER INC-2012184047

PATIENT
  Age: 73 Year
  Sex: Male
  Weight: 73.923 kg

DRUGS (3)
  1. SUTENT [Suspect]
     Indication: RENAL CELL CARCINOMA
     Dosage: 50 MG, UNK
     Dates: start: 20120629, end: 20120726
  2. NITROFURANTOIN [Concomitant]
     Dosage: TWICE DAILY
     Dates: start: 20120726
  3. LOSARTAN [Concomitant]
     Dosage: UNK

REACTIONS (6)
  - DECREASED APPETITE [None]
  - BLOOD URINE PRESENT [None]
  - THERMAL BURN [None]
  - SKIN ATROPHY [None]
  - ASTHENIA [None]
  - PROSTATIC DISORDER [None]
